FAERS Safety Report 22350932 (Version 2)
Quarter: 2023Q2

REPORT INFORMATION
  Report Type: Spontaneous
  Country: US (occurrence: US)
  Receive Date: 20230522
  Receipt Date: 20230608
  Transmission Date: 20230722
  Serious: Yes (Hospitalization)
  Sender: FDA-Public Use
  Company Number: US-PFIZER INC-PV202300057376

PATIENT
  Age: 51 Year
  Sex: Female

DRUGS (1)
  1. CIBINQO [Suspect]
     Active Substance: ABROCITINIB
     Indication: Psoriasis
     Dosage: 200 MG, 1X/DAY
     Route: 048

REACTIONS (3)
  - Asthma [Unknown]
  - Condition aggravated [Unknown]
  - Off label use [Unknown]
